FAERS Safety Report 11253076 (Version 2)
Quarter: 2015Q4

REPORT INFORMATION
  Report Type: Spontaneous
  Country: US (occurrence: US)
  Receive Date: 20150709
  Receipt Date: 20151006
  Transmission Date: 20160304
  Serious: No
  Sender: FDA-Public Use
  Company Number: US-009507513-1507USA002220

PATIENT
  Age: 21 Year
  Sex: Female
  Weight: 57.91 kg

DRUGS (3)
  1. NEXPLANON [Suspect]
     Active Substance: ETONOGESTREL
     Indication: PREGNANCY TEST NEGATIVE
     Dosage: 68 MG, UNK
     Route: 059
     Dates: start: 20150629
  2. ZOLOFT [Concomitant]
     Active Substance: SERTRALINE HYDROCHLORIDE
     Dosage: 100 MG, QD (1.5 TABLETS), DAILY
     Route: 048
  3. NEXPLANON [Suspect]
     Active Substance: ETONOGESTREL
     Indication: CONTRACEPTION
     Dosage: 68 MG, UNK
     Route: 059
     Dates: start: 20150605, end: 20150629

REACTIONS (6)
  - Medical device complication [Unknown]
  - Device expulsion [Recovered/Resolved]
  - Implant site pain [Recovered/Resolved]
  - No adverse event [Unknown]
  - Device deployment issue [Recovered/Resolved]
  - Mass excision [Recovered/Resolved]

NARRATIVE: CASE EVENT DATE: 20150605
